FAERS Safety Report 7298211-3 (Version None)
Quarter: 2011Q1

REPORT INFORMATION
  Report Type: 
  Country: None (occurrence: None)
  Receive Date: 20110128
  Receipt Date: 20110114
  Transmission Date: 20110831
  Serious: Yes (Hospitalization, Other)
  Sender: FDA-Public Use
  Company Number: US-145077

PATIENT
  Sex: Female
  Weight: 79.3 kg

DRUGS (2)
  1. WINRHO SDF LIQUID [Suspect]
     Indication: IDIOPATHIC THROMBOCYTOPENIC PURPURA
     Dosage: (50.44 ?G/KG INTRAVENOUS (NOT OTHERWISE SPECIFIED))
     Route: 042
     Dates: start: 20100712
  2. ORAL CONTRACEPTIVE NOS [Concomitant]

REACTIONS (8)
  - RENAL FAILURE ACUTE [None]
  - HEADACHE [None]
  - EPSTEIN-BARR VIRUS INFECTION [None]
  - HAEMATEMESIS [None]
  - HAEMOLYTIC ANAEMIA [None]
  - INTRAVASCULAR HAEMOLYSIS [None]
  - DIARRHOEA [None]
  - DIALYSIS [None]
